FAERS Safety Report 6994412-X (Version None)
Quarter: 2010Q3

REPORT INFORMATION
  Report Type: 
  Country: None (occurrence: None)
  Receive Date: 20100917
  Receipt Date: 20100907
  Transmission Date: 20110219
  Serious: Yes (Hospitalization)
  Sender: FDA-Public Use
  Company Number: JP-JNJFOC-20100704063

PATIENT
  Sex: Female

DRUGS (7)
  1. RISPERDAL [Suspect]
     Indication: PRODUCT USED FOR UNKNOWN INDICATION
     Route: 048
  2. RISPERDAL [Suspect]
     Route: 048
  3. RISPERIDONE [Suspect]
     Indication: DREAMY STATE
     Route: 048
  4. DIAZEPAM [Suspect]
     Indication: ANXIETY
     Route: 048
  5. ZOLPIDEM TARTRATE [Suspect]
     Indication: PRODUCT USED FOR UNKNOWN INDICATION
     Route: 048
  6. CARBAMAZEPINE [Concomitant]
     Indication: EPILEPSY
     Route: 048
  7. FOLIC ACID [Concomitant]
     Route: 048

REACTIONS (3)
  - DRUG EXPOSURE DURING PREGNANCY [None]
  - HOSPITALISATION [None]
  - OFF LABEL USE [None]
